FAERS Safety Report 10214346 (Version 2)
Quarter: 2014Q2

REPORT INFORMATION
  Report Type: Report from Study
  Country: GR (occurrence: GR)
  Receive Date: 20140603
  Receipt Date: 20140611
  Transmission Date: 20141212
  Serious: Yes (Other)
  Sender: FDA-Public Use
  Company Number: GR-ASTELLAS-2014US006268

PATIENT
  Sex: Male

DRUGS (8)
  1. ERLOTINIB [Suspect]
     Indication: LUNG ADENOCARCINOMA
     Dosage: 150 (UNIT NOT PROVIDED)
     Route: 065
  2. AVASTIN                            /01555201/ [Suspect]
     Indication: LUNG ADENOCARCINOMA
     Dosage: 7.5 (UNIT NOT REPORTED)/KG, UNKNOWN FREQ.
     Route: 065
  3. ZOMETA [Suspect]
     Indication: LUNG ADENOCARCINOMA
     Dosage: UNK UNK, UNKNOWN FREQ.
     Route: 065
  4. PULMICORT [Concomitant]
     Indication: PRODUCT USED FOR UNKNOWN INDICATION
     Dosage: UNK UNK, UNKNOWN FREQ.
     Route: 065
  5. MEDROL                             /00049601/ [Concomitant]
     Indication: PRODUCT USED FOR UNKNOWN INDICATION
     Dosage: UNK UNK, UNKNOWN FREQ.
     Route: 065
  6. LOSEC                              /00661201/ [Concomitant]
     Indication: PRODUCT USED FOR UNKNOWN INDICATION
     Dosage: 20 (UNIT NOT REPORTED), UNKNOWN FREQ.
     Route: 065
  7. FERRO FOLIC                        /00252201/ [Concomitant]
     Indication: PRODUCT USED FOR UNKNOWN INDICATION
     Dosage: UNK UNK, UNKNOWN FREQ.
     Route: 065
  8. BEROVENT [Concomitant]
     Indication: PRODUCT USED FOR UNKNOWN INDICATION
     Dosage: UNK UNK, UNKNOWN FREQ.
     Route: 065

REACTIONS (5)
  - Proteinuria [Unknown]
  - Haemorrhage [Unknown]
  - Hypertension [Unknown]
  - Haematuria [Unknown]
  - Rash [Unknown]
